FAERS Safety Report 4497974-X (Version None)
Quarter: 2004Q4

REPORT INFORMATION
  Report Type: 
  Country: None (occurrence: None)
  Receive Date: 20041105
  Receipt Date: 20041025
  Transmission Date: 20050328
  Serious: Yes (Other)
  Sender: FDA-Public Use
  Company Number: 8007939

PATIENT
  Age: 62 Year
  Sex: Female
  Weight: 86.36 kg

DRUGS (4)
  1. KEPPRA [Suspect]
     Indication: EPILEPSY
     Dosage: PO
     Route: 048
     Dates: start: 20030101, end: 20030601
  2. KEPPRA [Suspect]
     Indication: EPILEPSY
     Dosage: 500 G 2/D PO
     Route: 048
     Dates: start: 20030601
  3. ROBITUSSIN SYRUP [Concomitant]
  4. DIPHENHYDRAMINE [Concomitant]

REACTIONS (3)
  - ACCIDENTAL EXPOSURE [None]
  - MEDICATION ERROR [None]
  - PHARMACEUTICAL PRODUCT COMPLAINT [None]
